FAERS Safety Report 7688139-9 (Version None)
Quarter: 2011Q3

REPORT INFORMATION
  Report Type: 
  Country: None (occurrence: None)
  Receive Date: 20110817
  Receipt Date: 20110805
  Transmission Date: 20111222
  Serious: Yes (Death, Hospitalization, Other)
  Sender: FDA-Public Use
  Company Number: FR-ELI_LILLY_AND_COMPANY-FR201107000067

PATIENT
  Sex: Female

DRUGS (9)
  1. MEMANTINE HYDROCHLORIDE [Concomitant]
     Dosage: 10 MG, QD
     Route: 048
     Dates: start: 20101201
  2. RAMIPRIL [Concomitant]
     Dosage: 2.5 MG, QD
     Route: 048
     Dates: start: 20110518
  3. CALCIPARINE [Concomitant]
     Dosage: UNK
     Route: 058
     Dates: start: 20110517, end: 20110527
  4. COUMADIN [Concomitant]
     Dosage: 2 MG, QD
     Route: 048
     Dates: start: 20110116, end: 20110501
  5. OXAZEPAM [Concomitant]
     Dosage: 10 MG, TID
     Route: 048
  6. PANTOPRAZOLE [Concomitant]
     Dosage: 20 MG, QD
     Route: 048
  7. LASIX [Concomitant]
     Dosage: 40 MG, QD
     Route: 048
  8. CYMBALTA [Suspect]
     Dosage: 60 MG, QD
     Route: 048
     Dates: start: 20110516, end: 20110518
  9. BISOPROLOL FUMARATE [Concomitant]
     Dosage: 2.5 MG, QD
     Route: 048
     Dates: start: 20110201

REACTIONS (7)
  - CONVULSION [None]
  - AGITATION [None]
  - DYSARTHRIA [None]
  - SOMNOLENCE [None]
  - CARDIAC FAILURE [None]
  - AGGRESSION [None]
  - CEREBROVASCULAR ACCIDENT [None]
